FAERS Safety Report 5558430-0 (Version None)
Quarter: 2007Q4

REPORT INFORMATION
  Report Type: 
  Country: None (occurrence: None)
  Receive Date: 20071214
  Receipt Date: 20070918
  Transmission Date: 20080405
  Serious: No
  Sender: FDA-Public Use
  Company Number: US-ABBOTT-05P-163-0298964-00

PATIENT
  Sex: Male
  Weight: 86.26 kg

DRUGS (10)
  1. HUMIRA [Suspect]
     Indication: ANKYLOSING SPONDYLITIS
     Route: 058
     Dates: start: 20040601
  2. ACETAMINOPHEN [Concomitant]
     Indication: HEADACHE
     Route: 048
  3. FLUOXETINE HYDROCHLORIDE [Concomitant]
     Indication: DEPRESSION
     Route: 048
     Dates: start: 19980101
  4. PROPRANOLOL [Concomitant]
     Indication: RETINAL EXUDATES
     Route: 048
     Dates: start: 20010101
  5. FOLINIC ACID [Concomitant]
     Indication: ANKYLOSING SPONDYLITIS
     Route: 048
  6. DIAZEPAM [Concomitant]
     Indication: INSOMNIA
     Route: 048
  7. TRIAZOLAM [Concomitant]
     Indication: INSOMNIA
     Route: 048
  8. OMEPRAZOLE [Concomitant]
     Indication: GASTROINTESTINAL DISORDER
     Route: 048
     Dates: start: 20010101
  9. POLYCITRA [Concomitant]
     Indication: NEPHROLITHIASIS
     Route: 048
  10. POLYCITRA [Concomitant]
     Indication: PROPHYLAXIS

REACTIONS (2)
  - ARTHRITIS [None]
  - TENSION HEADACHE [None]
